FAERS Safety Report 10006028 (Version 1)
Quarter: 2014Q1

REPORT INFORMATION
  Report Type: Spontaneous
  Country: US (occurrence: US)
  Receive Date: 20140313
  Receipt Date: 20140313
  Transmission Date: 20141002
  Serious: Yes (Hospitalization)
  Sender: FDA-Public Use
  Company Number: US-ASTRAZENECA-2014SE16544

PATIENT
  Age: 62 Year
  Sex: Female

DRUGS (3)
  1. SYMBICORT [Suspect]
     Dosage: 2 PUFFS BID
     Route: 055
     Dates: start: 201401
  2. ADVAIR [Concomitant]
     Dosage: UNK
     Dates: end: 201401
  3. RESCUE INHALER [Concomitant]

REACTIONS (5)
  - Dyspnoea [Unknown]
  - Secretion discharge [Unknown]
  - Oxygen saturation decreased [Unknown]
  - Cough [Unknown]
  - Adverse event [Unknown]
